FAERS Safety Report 11199940 (Version 1)
Quarter: 2015Q2

REPORT INFORMATION
  Report Type: Spontaneous
  Country: SK (occurrence: SK)
  Receive Date: 20150618
  Receipt Date: 20150618
  Transmission Date: 20150821
  Serious: Yes (Death, Hospitalization)
  Sender: FDA-Public Use
  Company Number: SK-BAYER-2015-320083

PATIENT
  Age: 54 Year
  Sex: Male

DRUGS (1)
  1. NEXAVAR [Suspect]
     Active Substance: SORAFENIB
     Indication: METASTATIC RENAL CELL CARCINOMA
     Dosage: UNK
     Route: 048
     Dates: start: 20111031, end: 201111

REACTIONS (7)
  - Sepsis [Fatal]
  - Pneumothorax [None]
  - Dyspnoea [None]
  - Multi-organ failure [Fatal]
  - Lung abscess [None]
  - Metastases to lung [None]
  - Aspergillus infection [None]

NARRATIVE: CASE EVENT DATE: 201112
